FAERS Safety Report 15675153 (Version 1)
Quarter: 2018Q4

REPORT INFORMATION
  Report Type: Spontaneous
  Country: US (occurrence: US)
  Receive Date: 20181129
  Receipt Date: 20181129
  Transmission Date: 20190205
  Serious: Yes (Other)
  Sender: FDA-Public Use
  Company Number: None

PATIENT
  Age: 79 Year
  Sex: Male
  Weight: 63.9 kg

DRUGS (5)
  1. ATIVAN [Concomitant]
     Active Substance: LORAZEPAM
     Dates: start: 20181128, end: 20181128
  2. FOSPHENYTOIN [Suspect]
     Active Substance: FOSPHENYTOIN
     Indication: SEIZURE
     Route: 042
     Dates: start: 20181128, end: 20181128
  3. SUCCINYLCHOLINE [Concomitant]
     Active Substance: SUCCINYLCHOLINE
     Dates: start: 20181128, end: 20181128
  4. KEPPRA [Concomitant]
     Active Substance: LEVETIRACETAM
     Dates: start: 20181128, end: 20181128
  5. ETOMIDATE. [Concomitant]
     Active Substance: ETOMIDATE
     Dates: start: 20181128, end: 20181128

REACTIONS (2)
  - Adverse drug reaction [None]
  - Cardiac arrest [None]

NARRATIVE: CASE EVENT DATE: 20181128
